FAERS Safety Report 10387366 (Version 1)
Quarter: 2014Q1

REPORT INFORMATION
  Report Type: Spontaneous
  Country: US (occurrence: None)
  Receive Date: 20140306
  Receipt Date: 20140306
  Transmission Date: 20141002
  Serious: Yes (Hospitalization, Other)
  Sender: FDA-Public Use
  Company Number: 163-21880-13103652

PATIENT
  Age: 52 Year
  Sex: Male

DRUGS (1)
  1. REVLIMID (LENALIDOMIDE) 10 MILLIGRAM, CAPSULES) [Suspect]
     Indication: CENTRAL NERVOUS SYSTEM LYMPHOMA
     Route: 048
     Dates: start: 20130627, end: 20131015

REACTIONS (2)
  - Disease progression [None]
  - Central nervous system lymphoma [None]
